FAERS Safety Report 4729334-8 (Version None)
Quarter: 2005Q3

REPORT INFORMATION
  Report Type: 
  Country: None (occurrence: None)
  Receive Date: 20050729
  Receipt Date: 20050629
  Transmission Date: 20060218
  Serious: Yes (Hospitalization)
  Sender: FDA-Public Use
  Company Number: PHHO2005JP10499

PATIENT
  Age: 68 Year
  Sex: Female
  Weight: 57 kg

DRUGS (3)
  1. DIOVAN [Suspect]
     Indication: HYPERTENSION
     Dosage: 80 MG, QD
     Route: 048
     Dates: start: 20031007, end: 20031014
  2. DIOVAN [Suspect]
     Dosage: NO TREATMENT
     Route: 048
     Dates: start: 20031015, end: 20040422
  3. DIOVAN [Suspect]
     Dosage: 80 MG, QD
     Route: 048
     Dates: start: 20040423, end: 20041210

REACTIONS (4)
  - CEREBRAL INFARCTION [None]
  - DYSARTHRIA [None]
  - GASTRITIS [None]
  - HEMIPLEGIA [None]
